FAERS Safety Report 19678159 (Version 2)
Quarter: 2021Q3

REPORT INFORMATION
  Report Type: Other
  Country: JP (occurrence: JP)
  Receive Date: 20210810
  Receipt Date: 20210908
  Transmission Date: 20211014
  Serious: Yes (Death, Other)
  Sender: FDA-Public Use
  Company Number: JP-ROCHE-2887228

PATIENT
  Age: 62 Year
  Sex: Female

DRUGS (1)
  1. ENTRECTINIB [Suspect]
     Active Substance: ENTRECTINIB
     Indication: OVARIAN CANCER
     Route: 048
     Dates: start: 20191213, end: 20200123

REACTIONS (2)
  - Renal impairment [Unknown]
  - Disease progression [Fatal]
